FAERS Safety Report 9521834 (Version 1)
Quarter: 2013Q3

REPORT INFORMATION
  Report Type: Spontaneous
  Country: ES (occurrence: ES)
  Receive Date: 20130913
  Receipt Date: 20130913
  Transmission Date: 20140515
  Serious: Yes (Hospitalization)
  Sender: FDA-Public Use
  Company Number: ES-UCBSA-096621

PATIENT
  Age: 31 Year
  Sex: Male

DRUGS (2)
  1. KEPPRA [Suspect]
     Indication: CONVULSION
     Dosage: 500 MG
     Route: 048
     Dates: start: 20130614, end: 20130709
  2. RIFINAH [Concomitant]
     Indication: TUBERCULOSIS
     Dosage: 300 MG
     Route: 048
     Dates: start: 20130405, end: 20130709

REACTIONS (1)
  - Drug reaction with eosinophilia and systemic symptoms [Recovered/Resolved]
